FAERS Safety Report 11088510 (Version 1)
Quarter: 2015Q2

REPORT INFORMATION
  Report Type: Spontaneous
  Country: BR (occurrence: BR)
  Receive Date: 20150504
  Receipt Date: 20150504
  Transmission Date: 20150821
  Serious: Yes (Other)
  Sender: FDA-Public Use
  Company Number: PHHY2015BR051429

PATIENT
  Age: 59 Year
  Sex: Male

DRUGS (11)
  1. EVEROLIMUS [Suspect]
     Active Substance: EVEROLIMUS
     Indication: IMMUNOSUPPRESSION
     Dosage: 30TH DAY AFTER TRANSPLANT, 1.0+1.0
     Route: 065
  2. EVEROLIMUS [Suspect]
     Active Substance: EVEROLIMUS
     Dosage: 90TH DAY AFTER TRANSPLANT, 1.0+1.0
     Route: 065
  3. EVEROLIMUS [Suspect]
     Active Substance: EVEROLIMUS
     Indication: RENAL TRANSPLANT
     Dosage: 1.5+1.5
     Route: 065
     Dates: start: 20141220
  4. PREDNISONE. [Suspect]
     Active Substance: PREDNISONE
     Indication: RENAL TRANSPLANT
     Dosage: 13 MG, QD
     Route: 065
  5. TACROLIMUS. [Suspect]
     Active Substance: TACROLIMUS
     Dosage: 90TH DAY AFTER TRANSPLANT, 1+1
     Route: 065
  6. TACROLIMUS. [Suspect]
     Active Substance: TACROLIMUS
     Dosage: 1+1
     Route: 065
     Dates: start: 20150423
  7. EVEROLIMUS [Suspect]
     Active Substance: EVEROLIMUS
     Dosage: 1.25+1.25
     Route: 065
     Dates: start: 20150423
  8. PREDNISONE. [Suspect]
     Active Substance: PREDNISONE
     Indication: IMMUNOSUPPRESSION
  9. TACROLIMUS. [Suspect]
     Active Substance: TACROLIMUS
     Indication: IMMUNOSUPPRESSION
     Dosage: 30TH DAY AFTER TRANSPLANT, 2+1
     Route: 065
  10. THYMOGLOBULIN [Suspect]
     Active Substance: LAPINE T-LYMPHOCYTE IMMUNE GLOBULIN
     Indication: RENAL TRANSPLANT
     Dosage: 4.5 MG/KG, UNK
     Route: 065
  11. TACROLIMUS. [Suspect]
     Active Substance: TACROLIMUS
     Indication: RENAL TRANSPLANT
     Dosage: FROM 7+6 TO 3+3
     Route: 065
     Dates: start: 20141220

REACTIONS (5)
  - Oliguria [Unknown]
  - Complications of transplanted kidney [Unknown]
  - Pyelonephritis [Recovered/Resolved]
  - Renal tubular necrosis [Unknown]
  - Blood urea increased [Unknown]
